FAERS Safety Report 6943289-7 (Version None)
Quarter: 2010Q3

REPORT INFORMATION
  Report Type: 
  Country: None (occurrence: None)
  Receive Date: 20100826
  Receipt Date: 20100812
  Transmission Date: 20110219
  Serious: No
  Sender: FDA-Public Use
  Company Number: US-B.I. PHARMACEUTICALS,INC./RIDGEFIELD-2010-BP-08809BP

PATIENT
  Sex: Male

DRUGS (1)
  1. ZANTAC 150 [Suspect]
     Indication: FLATULENCE
     Dosage: 150 NR
     Dates: start: 20100701

REACTIONS (4)
  - CHEST PAIN [None]
  - MALAISE [None]
  - PRODUCTIVE COUGH [None]
  - VOMITING [None]
